FAERS Safety Report 23442065 (Version 2)
Quarter: 2024Q1

REPORT INFORMATION
  Report Type: Spontaneous
  Country: US (occurrence: US)
  Receive Date: 20240125
  Receipt Date: 20240220
  Transmission Date: 20240410
  Serious: No
  Sender: FDA-Public Use
  Company Number: US-BIOVITRUM-2024-US-001210

PATIENT
  Age: 12 Month
  Sex: Male
  Weight: 10.43 kg

DRUGS (5)
  1. SYNAGIS [Suspect]
     Active Substance: PALIVIZUMAB
     Indication: Premature baby
     Dosage: ONCE A MONTH
     Route: 030
     Dates: start: 20231117
  2. SYNAGIS [Suspect]
     Active Substance: PALIVIZUMAB
     Indication: Interruption of aortic arch
  3. EPINEPHRINE [Concomitant]
     Active Substance: EPINEPHRINE
     Indication: Product used for unknown indication
  4. FAMOTIDINE [Concomitant]
     Active Substance: FAMOTIDINE
     Indication: Product used for unknown indication
  5. INFANTS PROBIOTIC [Concomitant]
     Indication: Product used for unknown indication

REACTIONS (5)
  - Respiratory syncytial virus infection [Recovered/Resolved]
  - Mucous stools [Unknown]
  - Pyrexia [Unknown]
  - Irritability [Unknown]
  - Faeces discoloured [Unknown]

NARRATIVE: CASE EVENT DATE: 20240111
